FAERS Safety Report 24224324 (Version 1)
Quarter: 2024Q3

REPORT INFORMATION
  Report Type: Spontaneous
  Country: US (occurrence: None)
  Receive Date: 20240818
  Receipt Date: 20240818
  Transmission Date: 20241016
  Serious: Yes (Life-Threatening, Hospitalization)
  Sender: Public
  Company Number: None

PATIENT
  Age: 85 Year
  Sex: Male
  Weight: 67.5 kg

DRUGS (5)
  1. MYRBETRIQ [Suspect]
     Active Substance: MIRABEGRON
     Indication: Micturition urgency
     Dosage: DAILY ORAL
     Route: 048
     Dates: start: 20240609, end: 20240701
  2. LISINOPRIL [Concomitant]
     Active Substance: LISINOPRIL
  3. TERAZOSIN [Concomitant]
     Active Substance: TERAZOSIN HYDROCHLORIDE
  4. LIPITOR [Concomitant]
     Active Substance: ATORVASTATIN CALCIUM
  5. cholistyramine [Concomitant]

REACTIONS (6)
  - Headache [None]
  - Labile blood pressure [None]
  - Heart rate abnormal [None]
  - Confusional state [None]
  - Syncope [None]
  - Gait inability [None]

NARRATIVE: CASE EVENT DATE: 20240807
